FAERS Safety Report 9539527 (Version 1)
Quarter: 2013Q3

REPORT INFORMATION
  Report Type: Spontaneous
  Country: DK (occurrence: None)
  Receive Date: 20130917
  Receipt Date: 20130917
  Transmission Date: 20140515
  Serious: Yes (Disabling, Other)
  Sender: FDA-Public Use
  Company Number: 2013P1019141

PATIENT
  Age: 56 Year
  Sex: Male

DRUGS (3)
  1. METHYLPREDNISOLONE [Suspect]
     Indication: OBLITERATIVE BRONCHIOLITIS
     Route: 042
  2. UNSPECIFIED AGENTS FOR ^HEAVY SEDATION^ [Concomitant]
  3. UNSPECIFIED NEUROMUSCULAR BLOCKING AGENTS [Concomitant]

REACTIONS (3)
  - Myopathy [None]
  - Quadriplegia [None]
  - Rhabdomyolysis [None]
